FAERS Safety Report 21264537 (Version 1)
Quarter: 2022Q3

REPORT INFORMATION
  Report Type: Report from Study
  Country: US (occurrence: None)
  Receive Date: 20220829
  Receipt Date: 20220829
  Transmission Date: 20221027
  Serious: Yes (Death, Hospitalization, Other)
  Sender: FDA-Public Use
  Company Number: US-ROCHE-2935036

PATIENT
  Age: 68 Year
  Sex: Female
  Weight: 40.3 kg

DRUGS (6)
  1. ATEZOLIZUMAB [Suspect]
     Active Substance: ATEZOLIZUMAB
     Indication: Small cell lung cancer
     Dosage: ON 10/MAY/2021, RECEIVED (CYCLE 2 DAY 1) THE MOST RECENT DOSE OF ATEZOLIZUMAB PRIOR TO SAE.?ON 22/JU
     Route: 042
     Dates: start: 20210419
  2. CISPLATIN [Suspect]
     Active Substance: CISPLATIN
     Indication: Small cell lung cancer
     Dosage: ON 10/MAY/2021, RECEIVED (CYCLE 2 DAY 1) THE MOST RECENT DOSE OF CISPLATIN PRIOR TO SAE.?LAST ADMINI
     Route: 065
     Dates: start: 20210419
  3. ETOPOSIDE [Suspect]
     Active Substance: ETOPOSIDE
     Indication: Small cell lung cancer
     Dosage: ON 10/MAY/2021, RECEIVED (CYCLE 2 DAY 1) THE DOSE OF ETOPOSIDE. ?ON 12/MAY/2021,  RECEIVED (CYCLE 2
     Route: 065
  4. ATIVAN [Concomitant]
     Active Substance: LORAZEPAM
     Indication: Anxiety
  5. SCOPOLAMINE [Concomitant]
     Active Substance: SCOPOLAMINE
  6. HALDOL [Concomitant]
     Active Substance: HALOPERIDOL
     Indication: Agitation

REACTIONS (3)
  - Dyspnoea [Fatal]
  - Ejection fraction decreased [Unknown]
  - Cardiac arrest [Fatal]

NARRATIVE: CASE EVENT DATE: 20210522
